FAERS Safety Report 10579099 (Version 1)
Quarter: 2014Q4

REPORT INFORMATION
  Report Type: Spontaneous
  Country: US (occurrence: US)
  Receive Date: 20141112
  Receipt Date: 20141112
  Transmission Date: 20150529
  Serious: No
  Sender: FDA-Public Use
  Company Number: US-EISAI MEDICAL RESEARCH-EC-2014-001466

PATIENT
  Age: 59 Year
  Sex: Female
  Weight: 88.4 kg

DRUGS (5)
  1. BELVIQ [Suspect]
     Active Substance: LORCASERIN HYDROCHLORIDE
     Indication: WEIGHT DECREASED
     Route: 048
     Dates: start: 20141027, end: 20141103
  2. HERBAL [Concomitant]
     Indication: THYROID DISORDER
  3. MAGNESIUM [Concomitant]
     Active Substance: MAGNESIUM
  4. RESVERATROL [Concomitant]
     Active Substance: RESVERATROL
  5. HERBAL [Concomitant]
     Indication: ADRENAL INSUFFICIENCY

REACTIONS (2)
  - Dry mouth [Recovered/Resolved]
  - Thirst [Recovered/Resolved]

NARRATIVE: CASE EVENT DATE: 20141029
